FAERS Safety Report 21031111 (Version 1)
Quarter: 2022Q3

REPORT INFORMATION
  Report Type: Spontaneous
  Country: US (occurrence: US)
  Receive Date: 20220701
  Receipt Date: 20220701
  Transmission Date: 20221027
  Serious: No
  Sender: FDA-Public Use
  Company Number: US-ALLERGAN-2209267US

PATIENT
  Sex: Female

DRUGS (1)
  1. DURYSTA [Suspect]
     Active Substance: BIMATOPROST
     Indication: Open angle glaucoma
     Dosage: 0.01 MG, SINGLE
     Route: 031
     Dates: start: 2021, end: 20220315

REACTIONS (1)
  - Implant site oedema [Unknown]

NARRATIVE: CASE EVENT DATE: 20220311
